FAERS Safety Report 23653576 (Version 2)
Quarter: 2024Q2

REPORT INFORMATION
  Report Type: Spontaneous
  Country: PL (occurrence: PL)
  Receive Date: 20240320
  Receipt Date: 20240514
  Transmission Date: 20240715
  Serious: Yes (Other)
  Sender: FDA-Public Use
  Company Number: PL-002147023-NVSC2024PL053971

PATIENT
  Age: 39 Year
  Sex: Female

DRUGS (1)
  1. KESIMPTA [Suspect]
     Active Substance: OFATUMUMAB
     Indication: Product used for unknown indication
     Dosage: UNK
     Route: 065

REACTIONS (7)
  - Multiple sclerosis [Unknown]
  - Leukopenia [Unknown]
  - White blood cell count decreased [Unknown]
  - Paraesthesia [Unknown]
  - Balance disorder [Unknown]
  - Muscular weakness [Unknown]
  - Lymphopenia [Unknown]

NARRATIVE: CASE EVENT DATE: 20180101
